FAERS Safety Report 25706016 (Version 1)
Quarter: 2025Q3

REPORT INFORMATION
  Report Type: Spontaneous
  Country: EU (occurrence: EU)
  Receive Date: 20250820
  Receipt Date: 20250820
  Transmission Date: 20251020
  Serious: Yes (Life-Threatening, Other)
  Sender: PFIZER
  Company Number: EU-PFIZER INC-PV202500098641

PATIENT
  Age: 16 Month
  Sex: Male
  Weight: 10 kg

DRUGS (13)
  1. HYDROCORTISONE [Suspect]
     Active Substance: HYDROCORTISONE
     Indication: Steroid therapy
     Dosage: 2 MG/KG, DAILY
  2. HYDROCORTISONE [Suspect]
     Active Substance: HYDROCORTISONE
  3. AMINOPHYLLINE [Suspect]
     Active Substance: AMINOPHYLLINE
     Indication: Steroid therapy
  4. AMINOPHYLLINE [Suspect]
     Active Substance: AMINOPHYLLINE
  5. MIDAZOLAM [Concomitant]
     Active Substance: MIDAZOLAM
  6. MIDAZOLAM [Concomitant]
     Active Substance: MIDAZOLAM
     Dosage: 0.2 MG/KG, DAILY (INFUSION)
  7. VECURONIUM BROMIDE [Concomitant]
     Active Substance: VECURONIUM BROMIDE
  8. VECURONIUM BROMIDE [Concomitant]
     Active Substance: VECURONIUM BROMIDE
     Dosage: 0.1 MG/KG, DAILY
  9. CEFTAZIDIME [Concomitant]
     Active Substance: CEFTAZIDIME
     Indication: Antibiotic therapy
     Dosage: 50 MG/KG, 3X/DAY
  10. CEFTAZIDIME [Concomitant]
     Active Substance: CEFTAZIDIME
     Indication: Evidence based treatment
  11. TOBRAMYCIN [Concomitant]
     Active Substance: TOBRAMYCIN
     Indication: Antibiotic therapy
     Dosage: 6 MG/KG, DAILY
  12. TOBRAMYCIN [Concomitant]
     Active Substance: TOBRAMYCIN
     Indication: Evidence based treatment
  13. REMIFENTANIL [Concomitant]
     Active Substance: REMIFENTANIL

REACTIONS (1)
  - Myopathy [Recovered/Resolved]
